FAERS Safety Report 11427373 (Version 1)
Quarter: 2015Q3

REPORT INFORMATION
  Report Type: Spontaneous
  Country: US (occurrence: US)
  Receive Date: 20150827
  Receipt Date: 20150827
  Transmission Date: 20151125
  Serious: No
  Sender: FDA-Public Use
  Company Number: US-SA-2015SA087394

PATIENT
  Age: 53 Year
  Sex: Female
  Weight: 54.43 kg

DRUGS (19)
  1. FABRAZYME [Suspect]
     Active Substance: AGALSIDASE BETA
     Indication: LIPIDOSIS
     Route: 041
     Dates: start: 20120831
  2. METHIMAZOLE. [Concomitant]
     Active Substance: METHIMAZOLE
     Route: 048
     Dates: start: 20141014
  3. EPIPEN [Concomitant]
     Active Substance: EPINEPHRINE
     Indication: ANAPHYLACTIC REACTION
     Dosage: EPIPEN AUTOINJECTOR
     Route: 030
     Dates: start: 20120831
  4. AMLODIPINE BESILATE [Concomitant]
     Active Substance: AMLODIPINE BESYLATE
     Route: 048
     Dates: start: 20120827
  5. OSCAL [Concomitant]
     Active Substance: CALCIUM CARBONATE
     Dosage: OS-CAL 500+; 1 TABLET BY MOUTH DAILY
     Route: 048
     Dates: start: 20120726
  6. OMEGA-3 ACIDS [Concomitant]
     Active Substance: OMEGA-3 FATTY ACIDS
     Dosage: OMEGA_3 KRILL OIL SOFTGEL; 1 CAPSULE BY MOUTH DAILY
     Route: 048
     Dates: start: 20110726
  7. FABRAZYME [Suspect]
     Active Substance: AGALSIDASE BETA
     Indication: LIPIDOSIS
     Route: 041
     Dates: start: 20120831
  8. FABRAZYME [Suspect]
     Active Substance: AGALSIDASE BETA
     Indication: LIPIDOSIS
     Route: 041
     Dates: start: 20120831
  9. ASPIRIN. [Concomitant]
     Active Substance: ASPIRIN
     Dosage: 1 TABLET AS DIRECTED
     Route: 048
     Dates: start: 20150320
  10. CLONIDINE HYDROCHLORIDE. [Concomitant]
     Active Substance: CLONIDINE HYDROCHLORIDE
     Dosage: 1 DOSE AS DIRECTED
     Route: 048
     Dates: start: 20150320
  11. ESTRACE [Concomitant]
     Active Substance: ESTRADIOL
     Dosage: 1 DOSE AS NEEDED
     Dates: start: 20150320
  12. DIPHENHYDRAMINE HYDROCHLORIDE. [Concomitant]
     Active Substance: DIPHENHYDRAMINE HYDROCHLORIDE
     Indication: ANAPHYLACTIC REACTION
     Dosage: DOSE:50 MILLIGRAM(S)/MILLILITRE
     Route: 042
     Dates: start: 20140804
  13. CRESTOR [Concomitant]
     Active Substance: ROSUVASTATIN CALCIUM
     Route: 048
     Dates: start: 20120315
  14. FLONASE [Concomitant]
     Active Substance: FLUTICASONE PROPIONATE
     Dosage: 2 NASAL SPRAYS
     Dates: start: 20141014
  15. FABRAZYME [Suspect]
     Active Substance: AGALSIDASE BETA
     Indication: LIPIDOSIS
     Route: 041
     Dates: start: 20120831
  16. BIOTIN [Concomitant]
     Active Substance: BIOTIN
     Dosage: 1 DOSE AS DIRECTED
     Dates: start: 20120827
  17. LOSARTAN POTASSIUM. [Concomitant]
     Active Substance: LOSARTAN POTASSIUM
     Route: 048
     Dates: start: 20150512
  18. HYDROCHLOROTHIAZIDE. [Concomitant]
     Active Substance: HYDROCHLOROTHIAZIDE
     Dosage: 1 CAPSULE
     Route: 048
     Dates: start: 20150320
  19. NORMAL SALINE [Concomitant]
     Active Substance: SODIUM CHLORIDE
     Indication: MEDICATION DILUTION
     Dosage: 0.9% IV AS DIRECTED
     Route: 042
     Dates: start: 20120831

REACTIONS (1)
  - Fungal infection [Not Recovered/Not Resolved]
